FAERS Safety Report 22250519 (Version 2)
Quarter: 2023Q2

REPORT INFORMATION
  Report Type: Spontaneous
  Country: US (occurrence: US)
  Receive Date: 20230425
  Receipt Date: 20230430
  Transmission Date: 20230722
  Serious: No
  Sender: FDA-Public Use
  Company Number: US-SANOFI-01584364

PATIENT
  Age: 84 Year
  Sex: Male

DRUGS (1)
  1. FLOMAX [Suspect]
     Active Substance: TAMSULOSIN HYDROCHLORIDE
     Indication: Benign prostatic hyperplasia
     Dosage: 0.4 MG; QD
     Route: 065

REACTIONS (3)
  - Urinary incontinence [Unknown]
  - Wrong technique in product usage process [Unknown]
  - Unevaluable event [Unknown]
